FAERS Safety Report 19803271 (Version 1)
Quarter: 2021Q3

REPORT INFORMATION
  Report Type: Spontaneous
  Country: JP (occurrence: JP)
  Receive Date: 20210908
  Receipt Date: 20210908
  Transmission Date: 20211014
  Serious: Yes (Death, Other)
  Sender: FDA-Public Use
  Company Number: JP-MICRO LABS LIMITED-ML2021-02149

PATIENT
  Age: 5 Decade
  Sex: Female
  Weight: 84.5 kg

DRUGS (9)
  1. RISPERIDONE. [Suspect]
     Active Substance: RISPERIDONE
  2. ACETAMINOPHEN. [Suspect]
     Active Substance: ACETAMINOPHEN
  3. DEXTROMETHORPHAN HYDROBROMIDE. [Suspect]
     Active Substance: DEXTROMETHORPHAN HYDROBROMIDE
  4. LEVOMEPROMAZINE [Suspect]
     Active Substance: LEVOMEPROMAZINE
  5. ESTAZOLAM. [Suspect]
     Active Substance: ESTAZOLAM
  6. PROMETHAZINE [Suspect]
     Active Substance: PROMETHAZINE HYDROCHLORIDE
  7. CLOMIPRAMINE HYDROCHLORIDE (ANDA 213219) [Suspect]
     Active Substance: CLOMIPRAMINE HYDROCHLORIDE
  8. FLUNITRAZEPAM [Suspect]
     Active Substance: FLUNITRAZEPAM
  9. ALCOHOL. [Suspect]
     Active Substance: ALCOHOL

REACTIONS (2)
  - Toxicity to various agents [Fatal]
  - Drug interaction [Fatal]
